FAERS Safety Report 5474409-1 (Version None)
Quarter: 2007Q3

REPORT INFORMATION
  Report Type: 
  Country: None (occurrence: None)
  Receive Date: 20070928
  Receipt Date: 20070917
  Transmission Date: 20080115
  Serious: Yes (Hospitalization)
  Sender: FDA-Public Use
  Company Number: 100#03#2007-03657

PATIENT
  Age: 38 Year
  Sex: Female

DRUGS (7)
  1. CIPROFLOXACIN [Suspect]
     Indication: CELLULITIS
     Dosage: 500 MG (TWO TIMES DAILY)
     Dates: start: 20070731, end: 20070807
  2. FLUCLOXACILLIN (FLUCLOXACILLIN) (FLUCLOXACILLIN) [Suspect]
     Indication: DRUG USE FOR UNKNOWN INDICATION
     Dosage: 1 G (FOUR TIMES PER DAY)
     Dates: end: 20070807
  3. METRONIDAZOLE [Suspect]
     Indication: CELLULITIS
     Dosage: 400 MG (THREE TIMES PER DAY)
     Route: 048
     Dates: start: 20070731
  4. EPILIM (VALPROATE SODIUM (VALPROIC ACID) [Concomitant]
  5. LARGACTIL (CHLORPROMAZINE HYDROCHLORIDE) (CHLORPROMAZINE) [Concomitant]
  6. PARACETAMOL (PARACETAMOL) (PARACETAMOL) [Concomitant]
  7. TRAMADOL HCL [Concomitant]

REACTIONS (4)
  - ERYTHEMA MULTIFORME [None]
  - PRURITUS [None]
  - RASH [None]
  - URTICARIA [None]
